FAERS Safety Report 11697303 (Version 1)
Quarter: 2015Q4

REPORT INFORMATION
  Report Type: Spontaneous
  Country: US (occurrence: US)
  Receive Date: 20151104
  Receipt Date: 20151104
  Transmission Date: 20160304
  Serious: Yes (Other)
  Sender: FDA-Public Use
  Company Number: US-AMGEN-USASP2015114222

PATIENT
  Sex: Female

DRUGS (1)
  1. PROLIA [Suspect]
     Active Substance: DENOSUMAB
     Indication: PRODUCT USED FOR UNKNOWN INDICATION
     Dosage: UNK
     Route: 065

REACTIONS (10)
  - Rheumatoid arthritis [Recovered/Resolved]
  - Activities of daily living impaired [Recovered/Resolved]
  - Limb discomfort [Recovered/Resolved]
  - Feeling of despair [Recovered/Resolved]
  - Joint range of motion decreased [Recovered/Resolved]
  - Myalgia [Recovered/Resolved]
  - Musculoskeletal discomfort [Recovered/Resolved]
  - Bone pain [Recovered/Resolved]
  - Mobility decreased [Recovered/Resolved]
  - Feeling abnormal [Recovered/Resolved]
